FAERS Safety Report 4839516-2 (Version None)
Quarter: 2005Q4

REPORT INFORMATION
  Report Type: 
  Country: None (occurrence: None)
  Receive Date: 20051128
  Receipt Date: 20051128
  Transmission Date: 20060501
  Serious: Yes (Other)
  Sender: FDA-Public Use
  Company Number: None

PATIENT
  Age: 64 Year
  Sex: Male
  Weight: 81.6475 kg

DRUGS (4)
  1. ATENOLOL [Suspect]
     Indication: ESSENTIAL TREMOR
     Dosage: 1 TABLET 2X/DAY
     Dates: start: 20050901
  2. ATENOLOL [Suspect]
     Indication: HYPERTENSION
     Dosage: 1 TABLET 2X/DAY
     Dates: start: 20050901
  3. MIRAPEX [Concomitant]
  4. LUNESTA [Concomitant]

REACTIONS (5)
  - CONDITION AGGRAVATED [None]
  - DRUG INEFFECTIVE [None]
  - POOR QUALITY DRUG ADMINISTERED [None]
  - THERAPEUTIC RESPONSE UNEXPECTED WITH DRUG SUBSTITUTION [None]
  - TREMOR [None]
